FAERS Safety Report 4922764-0 (Version None)
Quarter: 2006Q1

REPORT INFORMATION
  Report Type: 
  Country: None (occurrence: None)
  Receive Date: 20060224
  Receipt Date: 20060125
  Transmission Date: 20060701
  Serious: Yes (Death, Hospitalization)
  Sender: FDA-Public Use
  Company Number: US-MERCK-0601USA03033

PATIENT
  Age: 44 Year
  Sex: Female
  Weight: 100 kg

DRUGS (5)
  1. VIOXX [Suspect]
     Indication: ARTHRITIS
     Route: 048
     Dates: start: 20020223, end: 20030123
  2. CEPHALEXIN [Concomitant]
     Route: 065
  3. CYTUSS HC [Concomitant]
     Route: 065
  4. PRINZIDE [Concomitant]
     Route: 048
  5. HYDROCODONE BITARTRATE [Concomitant]
     Route: 065

REACTIONS (3)
  - CARDIAC ARREST [None]
  - HYPERTENSION [None]
  - MYOCARDIAL INFARCTION [None]
